FAERS Safety Report 6439143-X (Version None)
Quarter: 2009Q4

REPORT INFORMATION
  Report Type: 
  Country: None (occurrence: None)
  Receive Date: 20091110
  Receipt Date: 20091026
  Transmission Date: 20100525
  Serious: Yes (Death, Hospitalization)
  Sender: FDA-Public Use
  Company Number: 2009AC000263

PATIENT
  Age: 69 Year
  Sex: Female

DRUGS (43)
  1. DIGOXIN [Suspect]
     Dosage: .125 MG;QD;PO
     Route: 048
  2. AMIODARONE HCL [Concomitant]
  3. MULTI-VITAMIN [Concomitant]
  4. OS-CAL [Concomitant]
  5. EFFEXOR [Concomitant]
  6. REMERON [Concomitant]
  7. LESCOL [Concomitant]
  8. ACCUPRIL [Concomitant]
  9. ADVAIR DISKUS 100/50 [Concomitant]
  10. COUMADIN [Concomitant]
  11. HYOSCYAMINE [Concomitant]
  12. MERTAZAPINE [Concomitant]
  13. PACERONE [Concomitant]
  14. QUINAPRIL [Concomitant]
  15. TEMAZEPAM [Concomitant]
  16. ATROVENT [Concomitant]
  17. RESTORIL [Concomitant]
  18. LEVSIN [Concomitant]
  19. CIPROFLOXACIN [Concomitant]
  20. AZITHROMYCIN [Concomitant]
  21. LEVAQUIN [Concomitant]
  22. CIPROFLOXACIN [Concomitant]
  23. AZITHROMYCIN [Concomitant]
  24. LEVAQUIN [Concomitant]
  25. VANCOMYCIN [Concomitant]
  26. HALOPERIDOL [Concomitant]
  27. IRON [Concomitant]
  28. AMIODARONE HCL [Concomitant]
  29. LEVSIN [Concomitant]
  30. REMERON [Concomitant]
  31. OS-CAL [Concomitant]
  32. ZITHROMAX [Concomitant]
  33. HYDROCODONE [Concomitant]
  34. DIFLUCAN [Concomitant]
  35. BACTROBAN [Concomitant]
  36. PROCHLORPERAZINE [Concomitant]
  37. FUROSEMIDE [Concomitant]
  38. POTASSIUM CHLORIDE [Concomitant]
  39. ACCUPRIL [Concomitant]
  40. AMIODARONE HCL [Concomitant]
  41. CIPROFLOXACIN [Concomitant]
  42. FERREX [Concomitant]
  43. AZITHROMYCIN [Concomitant]

REACTIONS (44)
  - ANHEDONIA [None]
  - ANXIETY [None]
  - ARTHRALGIA [None]
  - ASTHENIA [None]
  - ATRIAL FIBRILLATION [None]
  - ATRIAL FLUTTER [None]
  - BLOOD PRESSURE INCREASED [None]
  - BRADYCARDIA [None]
  - CARDIOMYOPATHY [None]
  - CAROTID ARTERY STENOSIS [None]
  - CAROTID BRUIT [None]
  - CHRONIC OBSTRUCTIVE PULMONARY DISEASE [None]
  - CONFUSIONAL STATE [None]
  - DECREASED APPETITE [None]
  - DEHYDRATION [None]
  - DIZZINESS [None]
  - DYSPNOEA [None]
  - ECONOMIC PROBLEM [None]
  - EMOTIONAL DISORDER [None]
  - HYPOPHAGIA [None]
  - INJURY [None]
  - INTERNATIONAL NORMALISED RATIO INCREASED [None]
  - LACRIMATION INCREASED [None]
  - LYMPHADENOPATHY [None]
  - LYMPHOMA [None]
  - MALAISE [None]
  - MENTAL DISORDER [None]
  - NASOPHARYNGITIS [None]
  - NAUSEA [None]
  - NODAL RHYTHM [None]
  - OEDEMA PERIPHERAL [None]
  - PAIN [None]
  - PANCYTOPENIA [None]
  - PNEUMONIA [None]
  - PNEUMOTHORAX [None]
  - PROTHROMBIN TIME PROLONGED [None]
  - RENAL FAILURE ACUTE [None]
  - RESPIRATORY DISTRESS [None]
  - SEPSIS [None]
  - SOCIAL PROBLEM [None]
  - THERAPEUTIC AGENT TOXICITY [None]
  - UPPER RESPIRATORY TRACT INFECTION [None]
  - WEIGHT DECREASED [None]
  - WHEEZING [None]
